FAERS Safety Report 6698510-X (Version None)
Quarter: 2010Q2

REPORT INFORMATION
  Report Type: 
  Country: None (occurrence: None)
  Receive Date: 20100426
  Receipt Date: 20100426
  Transmission Date: 20101027
  Serious: No
  Sender: FDA-Public Use
  Company Number: None

PATIENT
  Age: 61 Year
  Sex: Male
  Weight: 76 kg

DRUGS (1)
  1. CRESTOR [Suspect]
     Dosage: 5MG

REACTIONS (4)
  - CONFUSIONAL STATE [None]
  - DYSGEUSIA [None]
  - FATIGUE [None]
  - INSOMNIA [None]
